FAERS Safety Report 7371481-9 (Version None)
Quarter: 2011Q1

REPORT INFORMATION
  Report Type: 
  Country: None (occurrence: None)
  Receive Date: 20110324
  Receipt Date: 20110321
  Transmission Date: 20110831
  Serious: Yes (Other)
  Sender: FDA-Public Use
  Company Number: FI-AMGEN-FINSP2011011691

PATIENT
  Age: 85 Year
  Sex: Female

DRUGS (3)
  1. EMCONCOR                           /00802601/ [Concomitant]
     Dosage: 2.5 MG, QD
     Route: 048
  2. KALCIPOS-D [Concomitant]
     Route: 048
  3. PROLIA [Suspect]
     Indication: OSTEOPOROSIS POSTMENOPAUSAL
     Dosage: 60 MG, UNK
     Route: 058
     Dates: start: 20110209

REACTIONS (6)
  - CONSTIPATION [None]
  - INCREASED BRONCHIAL SECRETION [None]
  - URTICARIA [None]
  - HYPERSENSITIVITY [None]
  - BRONCHITIS [None]
  - PNEUMONIA [None]
